FAERS Safety Report 12313029 (Version 1)
Quarter: 2016Q2

REPORT INFORMATION
  Report Type: Spontaneous
  Country: US (occurrence: US)
  Receive Date: 20160428
  Receipt Date: 20160428
  Transmission Date: 20160815
  Serious: No
  Sender: FDA-Public Use
  Company Number: US-BAYER-2016-081576

PATIENT
  Age: 26 Year
  Sex: Male
  Weight: 72.56 kg

DRUGS (4)
  1. CLARITIN [Suspect]
     Active Substance: LORATADINE
     Indication: SNEEZING
     Dosage: 1 DF, QD
     Route: 048
     Dates: start: 20160424, end: 20160426
  2. CLARITIN [Suspect]
     Active Substance: LORATADINE
     Indication: LACRIMATION INCREASED
  3. CLARITIN [Suspect]
     Active Substance: LORATADINE
     Indication: EYE PRURITUS
  4. CLARITIN [Suspect]
     Active Substance: LORATADINE
     Indication: RHINORRHOEA

REACTIONS (1)
  - Drug ineffective [None]
